FAERS Safety Report 6620671-9 (Version None)
Quarter: 2010Q1

REPORT INFORMATION
  Report Type: 
  Country: None (occurrence: None)
  Receive Date: 20100309
  Receipt Date: 20100223
  Transmission Date: 20100710
  Serious: Yes (Other)
  Sender: FDA-Public Use
  Company Number: DE-GENENTECH-298872

PATIENT
  Age: 77 Year
  Sex: Female

DRUGS (9)
  1. LUCENTIS [Suspect]
     Indication: MACULAR DEGENERATION
     Dosage: UNK
     Route: 031
     Dates: start: 20071201
  2. LUCENTIS [Suspect]
     Dosage: UNK
     Route: 031
     Dates: start: 20080101
  3. LUCENTIS [Suspect]
     Dosage: UNK
     Route: 031
     Dates: start: 20080201
  4. LUCENTIS [Suspect]
     Dosage: UNK
     Route: 031
     Dates: start: 20080901
  5. LUCENTIS [Suspect]
     Dosage: UNK
     Route: 031
     Dates: start: 20081001
  6. LUCENTIS [Suspect]
     Dosage: UNK
     Route: 031
     Dates: start: 20081101
  7. LUCENTIS [Suspect]
     Dosage: UNK
     Route: 031
     Dates: start: 20090401
  8. LUCENTIS [Suspect]
     Dosage: UNK
     Route: 031
     Dates: start: 20090501
  9. LUCENTIS [Suspect]
     Dosage: UNK
     Route: 031
     Dates: start: 20090601

REACTIONS (3)
  - CATARACT [None]
  - SCOTOMA [None]
  - VISUAL ACUITY REDUCED [None]
